FAERS Safety Report 14584956 (Version 1)
Quarter: 2018Q1

REPORT INFORMATION
  Report Type: Spontaneous
  Country: BE (occurrence: BE)
  Receive Date: 20180301
  Receipt Date: 20180301
  Transmission Date: 20180509
  Serious: Yes (Disabling)
  Sender: FDA-Public Use
  Company Number: BE-MERCK KGAA-2042783

PATIENT
  Sex: Female

DRUGS (1)
  1. NOVOTHYROX [Suspect]
     Active Substance: LEVOTHYROXINE SODIUM
     Indication: PRODUCT USED FOR UNKNOWN INDICATION
     Dates: start: 2015, end: 201709

REACTIONS (3)
  - Erythema [Unknown]
  - Pruritus generalised [Unknown]
  - Urticaria [Unknown]

NARRATIVE: CASE EVENT DATE: 201612
